FAERS Safety Report 20328108 (Version 1)
Quarter: 2022Q1

REPORT INFORMATION
  Report Type: Report from Study
  Country: JP (occurrence: JP)
  Receive Date: 20220112
  Receipt Date: 20220112
  Transmission Date: 20220423
  Serious: Yes (Other)
  Sender: FDA-Public Use
  Company Number: JP-ONO-2022JP000315

PATIENT
  Age: 64 Year
  Sex: Male
  Weight: 82.5 kg

DRUGS (3)
  1. BRAFTOVI [Suspect]
     Active Substance: ENCORAFENIB
     Indication: Rectal cancer
     Dosage: 300 MG
     Route: 048
     Dates: start: 20210615
  2. MEKTOVI [Suspect]
     Active Substance: BINIMETINIB
     Indication: Rectal cancer
     Dosage: 90 MG
     Route: 048
     Dates: start: 20210615
  3. CETUXIMAB [Concomitant]
     Active Substance: CETUXIMAB
     Indication: Rectal cancer
     Dosage: 500 MG/M2
     Route: 065
     Dates: start: 20210615

REACTIONS (1)
  - Subretinal fluid [Unknown]

NARRATIVE: CASE EVENT DATE: 20211228
